FAERS Safety Report 18429443 (Version 2)
Quarter: 2020Q4

REPORT INFORMATION
  Report Type: Spontaneous
  Country: JP (occurrence: JP)
  Receive Date: 20201026
  Receipt Date: 20201028
  Transmission Date: 20210114
  Serious: Yes (Other)
  Sender: FDA-Public Use
  Company Number: JP-PFIZER INC-2020409915

PATIENT
  Age: 58 Year
  Sex: Female

DRUGS (9)
  1. LIMAPROST ALFADEX SAWAI [Concomitant]
     Dosage: UNK
  2. ALFACALCIDOL AMEL [Concomitant]
     Dosage: UNK
  3. LOXOPROFEN EMEC [Concomitant]
     Active Substance: LOXOPROFEN
     Dosage: UNK
  4. ZETIA [Concomitant]
     Active Substance: EZETIMIBE
     Dosage: UNK
  5. ZACRAS COMBINATION TABLETS HD [Concomitant]
     Active Substance: AMLODIPINE BESYLATE\AZILSARTAN
     Dosage: UNK
  6. ALENDRONATE PFIZER [Concomitant]
     Active Substance: ALENDRONATE SODIUM
     Dosage: UNK
  7. LYRICA [Suspect]
     Active Substance: PREGABALIN
     Indication: ARTHRALGIA
     Dosage: 150 MG, 2X/DAY
     Route: 048
     Dates: start: 20200116
  8. LANSOPRAZOLE TEVA [Concomitant]
     Active Substance: LANSOPRAZOLE
     Dosage: UNK, 1X/DAY
  9. PRAVASTATIN NA TANABE [Concomitant]
     Dosage: UNK

REACTIONS (4)
  - Enterocolitis [Recovered/Resolved]
  - Prescribed overdose [Unknown]
  - Haematochezia [Recovering/Resolving]
  - Abdominal pain [Recovering/Resolving]

NARRATIVE: CASE EVENT DATE: 2020
